FAERS Safety Report 24163369 (Version 1)
Quarter: 2024Q3

REPORT INFORMATION
  Report Type: Spontaneous
  Country: US (occurrence: US)
  Receive Date: 20240801
  Receipt Date: 20240801
  Transmission Date: 20241017
  Serious: No
  Sender: FRESENIUS KABI
  Company Number: US-FreseniusKabi-FK202411429

PATIENT
  Age: 84 Year
  Sex: Female
  Weight: 58.97 kg

DRUGS (3)
  1. XYLOCAINE WITH EPINEPHRINE [Suspect]
     Active Substance: EPINEPHRINE BITARTRATE\LIDOCAINE HYDROCHLORIDE
     Indication: Local anaesthesia
     Dosage: FORM OF ADMINISTRATION: INJECTION?0.5CC VIA PERCUTANEOUS ROUTE TO INCISION SITE ON CHEST?FREQUENCY:
     Dates: start: 20240711
  2. XYLOCAINE WITH EPINEPHRINE [Suspect]
     Active Substance: EPINEPHRINE BITARTRATE\LIDOCAINE HYDROCHLORIDE
     Dosage: FORM OF ADMINISTRATION: INJECTION
  3. LOSARTAN [Concomitant]
     Active Substance: LOSARTAN\LOSARTAN POTASSIUM
     Indication: Hypertension

REACTIONS (4)
  - Injection site pain [Not Recovered/Not Resolved]
  - Injection site irritation [Not Recovered/Not Resolved]
  - Injection site pruritus [Recovered/Resolved]
  - Exposure to allergen [Unknown]

NARRATIVE: CASE EVENT DATE: 20240711
